FAERS Safety Report 17955266 (Version 1)
Quarter: 2020Q2

REPORT INFORMATION
  Report Type: Spontaneous
  Country: US (occurrence: US)
  Receive Date: 20200626
  Receipt Date: 20200626
  Transmission Date: 20200714
  Serious: Yes (Other)
  Sender: FDA-Public Use
  Company Number: None

PATIENT
  Age: 52 Year
  Sex: Female
  Weight: 68.85 kg

DRUGS (2)
  1. METFORMIN XR 500 MG 2 TABLETS 2 TIMES DAILY WITH MEALS [Concomitant]
     Dates: start: 20000101
  2. TRULICITY [Suspect]
     Active Substance: DULAGLUTIDE
     Indication: TYPE 2 DIABETES MELLITUS
     Dosage: ?          OTHER FREQUENCY:ONCE WEEKLY;?
     Route: 058
     Dates: start: 20200616, end: 20200619

REACTIONS (4)
  - Lipase increased [None]
  - Nausea [None]
  - Vomiting [None]
  - Parosmia [None]

NARRATIVE: CASE EVENT DATE: 20200616
